FAERS Safety Report 11617894 (Version 1)
Quarter: 2015Q4

REPORT INFORMATION
  Report Type: Spontaneous
  Country: HU (occurrence: HU)
  Receive Date: 20151009
  Receipt Date: 20151009
  Transmission Date: 20160304
  Serious: Yes (Hospitalization)
  Sender: FDA-Public Use
  Company Number: HU-IMPAX LABORATORIES, INC-2015-IPXL-01004

PATIENT
  Age: 10 Day
  Sex: Female
  Weight: 1.8 kg

DRUGS (1)
  1. DIVALPROEX SODIUM ER [Suspect]
     Active Substance: DIVALPROEX SODIUM
     Indication: EPILEPSY
     Dosage: 30 MG/KG, UNK
     Route: 065

REACTIONS (3)
  - Hyperammonaemia [Recovered/Resolved]
  - Blood alkaline phosphatase increased [Recovered/Resolved]
  - Bone marrow failure [Recovered/Resolved]
